FAERS Safety Report 5054255-3 (Version None)
Quarter: 2006Q3

REPORT INFORMATION
  Report Type: 
  Country: None (occurrence: None)
  Receive Date: 20060716
  Receipt Date: 20060502
  Transmission Date: 20061208
  Serious: Yes (Other)
  Sender: FDA-Public Use
  Company Number: 446787

PATIENT
  Age: 84 Year
  Sex: Female

DRUGS (6)
  1. BONIVA [Suspect]
     Indication: OSTEOPOROSIS
     Dosage: 1 PER MONTH ORAL
     Route: 048
     Dates: start: 20060315
  2. LOVASTATIN [Concomitant]
  3. MOBIC [Concomitant]
  4. PLENDIL [Concomitant]
  5. NEXIUM [Concomitant]
  6. INDERAL [Concomitant]

REACTIONS (1)
  - BURNING SENSATION [None]
